FAERS Safety Report 15680673 (Version 1)
Quarter: 2018Q4

REPORT INFORMATION
  Report Type: Spontaneous
  Country: CN (occurrence: CN)
  Receive Date: 20181203
  Receipt Date: 20181203
  Transmission Date: 20190205
  Serious: Yes (Other)
  Sender: FDA-Public Use
  Company Number: PHHY2018CN171783

PATIENT
  Age: 63 Year
  Sex: Female

DRUGS (3)
  1. CALCITRIOL. [Concomitant]
     Active Substance: CALCITRIOL
     Indication: OSTEOPOROSIS
     Route: 048
  2. CALCIUM CARBONATE. [Concomitant]
     Active Substance: CALCIUM CARBONATE
     Indication: OSTEOPOROSIS
     Route: 065
  3. ZOLEDRONATE [Suspect]
     Active Substance: ZOLEDRONIC ACID
     Indication: OSTEOPOROSIS
     Dosage: 5 MG, UNK
     Route: 042

REACTIONS (9)
  - Eyelid ptosis [Recovered/Resolved]
  - Swelling of eyelid [Recovering/Resolving]
  - Conjunctival hyperaemia [Recovered/Resolved]
  - Eyelid thickening [Recovered/Resolved]
  - Pyrexia [Recovered/Resolved]
  - Eye movement disorder [Recovered/Resolved]
  - Eye pain [Recovering/Resolving]
  - Eye inflammation [Recovering/Resolving]
  - Dry eye [Recovering/Resolving]
